FAERS Safety Report 13484298 (Version 1)
Quarter: 2017Q2

REPORT INFORMATION
  Report Type: Spontaneous
  Country: GB (occurrence: GB)
  Receive Date: 20170426
  Receipt Date: 20170426
  Transmission Date: 20170830
  Serious: Yes (Other)
  Sender: FDA-Public Use
  Company Number: GB-TORRENT-00015201

PATIENT
  Age: 27 Year
  Sex: Female
  Weight: 42 kg

DRUGS (18)
  1. DERMOL [Concomitant]
     Active Substance: BENZALKONIUM CHLORIDE\CHLORHEXIDINE HYDROCHLORIDE\ISOPROPYL MYRISTATE\PARAFFIN
  2. PROCHLORPERAZINE. [Concomitant]
     Active Substance: PROCHLORPERAZINE
  3. COCODAMOL [Concomitant]
     Active Substance: ACETAMINOPHEN\CODEINE PHOSPHATE
  4. DIAZEPAM. [Concomitant]
     Active Substance: DIAZEPAM
  5. HYDROCORTISONE. [Concomitant]
     Active Substance: HYDROCORTISONE
  6. MONTELUKAST [Suspect]
     Active Substance: MONTELUKAST SODIUM
  7. HYDROXYZINE/HYDROXYZINE HYDROCHLORIDE [Concomitant]
  8. ZOPICLONE [Concomitant]
     Active Substance: ZOPICLONE
  9. SYSTANE (HYPROMELLOSE 2910 (4000 MPA.S)) [Concomitant]
     Active Substance: HYPROMELLOSE 2910 (4000 MPA.S)
  10. DERMOVATE [Concomitant]
     Active Substance: CLOBETASOL
  11. DOUBLEBASE [Concomitant]
     Active Substance: ISOPROPYL MYRISTATE\PARAFFIN
  12. PROTOPIC [Concomitant]
     Active Substance: TACROLIMUS
  13. TACROLIMUS. [Concomitant]
     Active Substance: TACROLIMUS
  14. VENTOLIN [Concomitant]
     Active Substance: ALBUTEROL SULFATE
  15. HYDROMOL EMOLLIENT [Concomitant]
  16. FERROUS SULFATE. [Concomitant]
     Active Substance: FERROUS SULFATE
  17. IBUPROFEN. [Concomitant]
     Active Substance: IBUPROFEN
  18. SYMBICORT [Concomitant]
     Active Substance: BUDESONIDE\FORMOTEROL FUMARATE DIHYDRATE

REACTIONS (2)
  - Eczema [Unknown]
  - Rash [Unknown]

NARRATIVE: CASE EVENT DATE: 20170326
